FAERS Safety Report 9825907 (Version 1)
Quarter: 2014Q1

REPORT INFORMATION
  Report Type: Spontaneous
  Country: CH (occurrence: CH)
  Receive Date: 20140117
  Receipt Date: 20140117
  Transmission Date: 20141002
  Serious: Yes (Other)
  Sender: FDA-Public Use
  Company Number: CH-BAYER-2014-006716

PATIENT
  Sex: 0

DRUGS (1)
  1. STIVARGA [Suspect]
     Dosage: 160 MG, UNK
     Dates: start: 201209

REACTIONS (3)
  - Neoplasm progression [Unknown]
  - Hypothyroidism [Unknown]
  - Palmar-plantar erythrodysaesthesia syndrome [Unknown]
